FAERS Safety Report 24169155 (Version 1)
Quarter: 2024Q3

REPORT INFORMATION
  Report Type: Spontaneous
  Country: NL (occurrence: NL)
  Receive Date: 20240802
  Receipt Date: 20240802
  Transmission Date: 20241017
  Serious: Yes (Hospitalization)
  Sender: MYLAN
  Company Number: None

PATIENT
  Age: 73 Year
  Sex: Female
  Weight: 62 kg

DRUGS (2)
  1. TELMISARTAN [Suspect]
     Active Substance: TELMISARTAN
     Indication: Hypertension
     Dosage: 40 MILLIGRAM, BID(12 HOURS, 40MG INCREASED TO 80,MORNING DOSE OF 40MG AT 14.30 WITH ANOTHER 40MG)
     Route: 065
     Dates: start: 20240703, end: 20240704
  2. TELMISARTAN [Suspect]
     Active Substance: TELMISARTAN
     Indication: Extrasystoles

REACTIONS (5)
  - Arrhythmia [Recovered/Resolved]
  - Supraventricular extrasystoles [Recovered/Resolved]
  - Hypertension [Recovered/Resolved]
  - Tachycardia [Recovered/Resolved]
  - Drug ineffective [Unknown]
